FAERS Safety Report 7735311-5 (Version None)
Quarter: 2011Q3

REPORT INFORMATION
  Report Type: 
  Country: None (occurrence: None)
  Receive Date: 20110907
  Receipt Date: 20110830
  Transmission Date: 20111222
  Serious: Yes (Hospitalization)
  Sender: FDA-Public Use
  Company Number: US-SANOFI-AVENTIS-2011SA055804

PATIENT
  Age: 43 Year
  Sex: Female

DRUGS (2)
  1. SOLOSTAR [Suspect]
     Indication: TYPE 2 DIABETES MELLITUS
  2. LANTUS [Suspect]
     Indication: TYPE 2 DIABETES MELLITUS
     Dosage: 50-60 UNITS
     Route: 058

REACTIONS (3)
  - LOWER LIMB FRACTURE [None]
  - ILL-DEFINED DISORDER [None]
  - HYPERGLYCAEMIA [None]
